FAERS Safety Report 18217369 (Version 1)
Quarter: 2020Q3

REPORT INFORMATION
  Report Type: Spontaneous
  Country: US (occurrence: US)
  Receive Date: 20200831
  Receipt Date: 20200831
  Transmission Date: 20201103
  Serious: No
  Sender: FDA-Public Use
  Company Number: None

PATIENT
  Age: 62 Year
  Sex: Male

DRUGS (1)
  1. ACETAMINOPHEN/OXYCODONE (OXYCODONE HCL 5MG/ACETAMINOPHEN 325MG CAP) [Suspect]
     Active Substance: ACETAMINOPHEN\OXYCODONE HYDROCHLORIDE
     Indication: POSTOPERATIVE ANALGESIA
     Dates: start: 20171019, end: 20171101

REACTIONS (1)
  - Drug eruption [None]

NARRATIVE: CASE EVENT DATE: 20171101
